FAERS Safety Report 5377978-5 (Version None)
Quarter: 2007Q2

REPORT INFORMATION
  Report Type: 
  Country: None (occurrence: None)
  Receive Date: 20070629
  Receipt Date: 20070618
  Transmission Date: 20071010
  Serious: Yes (Hospitalization)
  Sender: FDA-Public Use
  Company Number: 2007BI011396

PATIENT
  Age: 68 Year
  Sex: Female

DRUGS (14)
  1. AVONEX [Suspect]
     Indication: MULTIPLE SCLEROSIS
     Dosage: 30 UG;QW;IM
     Route: 030
     Dates: start: 19971201, end: 20030801
  2. AVONEX [Suspect]
     Indication: MULTIPLE SCLEROSIS
     Dosage: 30 UG;QW;IM
     Route: 030
     Dates: start: 20030801
  3. ATENOLOL [Concomitant]
  4. FAMOTIDINE [Concomitant]
  5. MULTI-VITAMIN [Concomitant]
  6. GUAIFENESIN [Concomitant]
  7. BENZAPRIL [Concomitant]
  8. LEXAPRO [Concomitant]
  9. TRIAMTERENE AND HYDROCHLOROTHIAZIDE [Concomitant]
  10. LEVOTHYROXINE SODIUM [Concomitant]
  11. LASIX [Concomitant]
  12. ALPRAZOLAM [Concomitant]
  13. HYDROCODONE BITARTRATE [Concomitant]
  14. FLONASE [Concomitant]

REACTIONS (9)
  - CELLULITIS [None]
  - DECREASED ACTIVITY [None]
  - FALL [None]
  - HYPERSOMNIA [None]
  - LETHARGY [None]
  - LIMB INJURY [None]
  - OVERWEIGHT [None]
  - SPEECH DISORDER [None]
  - SUDDEN ONSET OF SLEEP [None]
